FAERS Safety Report 11686514 (Version 4)
Quarter: 2016Q1

REPORT INFORMATION
  Report Type: Spontaneous
  Country: JP (occurrence: JP)
  Receive Date: 20151030
  Receipt Date: 20160220
  Transmission Date: 20160525
  Serious: Yes (Hospitalization)
  Sender: FDA-Public Use
  Company Number: JP-AMGEN-JPNSP2015114415

PATIENT
  Age: 51 Year
  Sex: Female
  Weight: 43 kg

DRUGS (28)
  1. G-LASTA [Suspect]
     Active Substance: PEGFILGRASTIM
     Dosage: 3.6 MG, QD
     Route: 058
     Dates: start: 20151002, end: 20151002
  2. DECADRON [Concomitant]
     Active Substance: DEXAMETHASONE
     Dosage: 2 MG, DAY 2-4
     Route: 048
  3. EMEND [Concomitant]
     Active Substance: APREPITANT
     Dosage: 120 MG, QD
     Route: 048
  4. G-LASTA [Suspect]
     Active Substance: PEGFILGRASTIM
     Indication: PRODUCT USED FOR UNKNOWN INDICATION
     Dosage: 3.6 MG, QD
     Route: 058
     Dates: start: 20150820, end: 20150820
  5. G-LASTA [Suspect]
     Active Substance: PEGFILGRASTIM
     Dosage: 3.6 MG, QD
     Route: 058
     Dates: start: 20150911, end: 20150911
  6. EPIRUBICIN HYDROCHLORIDE. [Suspect]
     Active Substance: EPIRUBICIN HYDROCHLORIDE
     Indication: BREAST CANCER
     Dosage: 135 MG, 1X/3WEEKS
     Route: 041
     Dates: start: 20150818, end: 20150930
  7. ALOXI [Concomitant]
     Active Substance: PALONOSETRON HYDROCHLORIDE
     Dosage: 0.75 MG, 1X/3WEEKS
     Route: 042
     Dates: start: 20150818, end: 20150930
  8. AUGMENTIN [Concomitant]
     Active Substance: AMOXICILLIN\CLAVULANATE POTASSIUM
     Indication: ANTIBIOTIC THERAPY
     Dosage: 250 MG, TID
     Route: 048
     Dates: start: 20150922, end: 20150924
  9. AUGMENTIN [Concomitant]
     Active Substance: AMOXICILLIN\CLAVULANATE POTASSIUM
     Dosage: 250 MG, TID
     Route: 048
     Dates: start: 20151005, end: 20151007
  10. VANCOMYCIN [Concomitant]
     Active Substance: VANCOMYCIN
     Indication: ANTIBIOTIC THERAPY
     Dosage: 1 G, QD
     Route: 042
     Dates: start: 20151013, end: 20151016
  11. ENDOXAN                            /00021102/ [Suspect]
     Active Substance: CYCLOPHOSPHAMIDE
     Indication: BREAST CANCER
     Dosage: 675 MG, 1X/3WEEKS
     Route: 041
     Dates: start: 20150818, end: 20150930
  12. CEFEPIME HYDROCHLORIDE. [Concomitant]
     Active Substance: CEFEPIME HYDROCHLORIDE
     Indication: ANTIBIOTIC THERAPY
     Dosage: 2 G, TID
     Route: 042
     Dates: start: 20151009, end: 20151010
  13. MIYA-BM [Concomitant]
     Active Substance: CLOSTRIDIUM BUTYRICUM SPORES STRAIN M-55
     Indication: ENTEROCOLITIS
     Dosage: 40 MG, TID
     Route: 048
     Dates: start: 20151013, end: 20151028
  14. KAMISHOYOSAN                       /07987101/ [Suspect]
     Active Substance: HERBALS
     Indication: MENOPAUSAL SYMPTOMS
     Dosage: 2 G, TID
     Route: 048
     Dates: start: 20150701, end: 20151016
  15. MUCOSTA [Concomitant]
     Active Substance: REBAMIPIDE
     Dosage: 100 MG, TID (DAY 2-6)
     Route: 048
  16. 5-FU                               /00098801/ [Suspect]
     Active Substance: FLUOROURACIL
     Indication: BREAST CANCER
     Dosage: 675 MG, 1X/3WEEKS
     Route: 041
     Dates: start: 20150818, end: 20150930
  17. CEFAZOLIN SODIUM. [Concomitant]
     Active Substance: CEFAZOLIN SODIUM
     Indication: INFECTION PROPHYLAXIS
     Dosage: 1 G, TID
     Route: 042
     Dates: start: 20150714, end: 20150715
  18. LOBU [Concomitant]
     Active Substance: LOBUCAVIR
     Indication: PROCEDURAL PAIN
     Dosage: 60 MG, TID
     Route: 048
     Dates: start: 20150715, end: 20150731
  19. PASETOCIN                          /00249602/ [Concomitant]
     Indication: ANTIBIOTIC THERAPY
     Dosage: 250 MG, TID
     Route: 048
  20. FUNGUARD [Concomitant]
     Active Substance: MICAFUNGIN SODIUM
     Indication: ANTIBIOTIC THERAPY
     Dosage: 100 MG, QD
     Route: 042
     Dates: start: 20151013, end: 20151017
  21. ORGADRONE                          /00016002/ [Concomitant]
     Dosage: 7.6 MG, QD
     Route: 065
  22. EMEND [Concomitant]
     Active Substance: APREPITANT
     Dosage: 80 MG, QD (DAY 2-3)
     Route: 048
  23. MEROPENEM. [Concomitant]
     Active Substance: MEROPENEM
     Indication: ANTIBIOTIC THERAPY
     Dosage: 1 G, TID
     Route: 042
     Dates: start: 20151010, end: 20151016
  24. LEVOFLOXACIN HEMIHYDRATE [Concomitant]
     Active Substance: LEVOFLOXACIN
     Indication: ANTIBIOTIC THERAPY
     Dosage: 500 MG, QD
     Route: 048
  25. ZANTAC [Concomitant]
     Active Substance: RANITIDINE HYDROCHLORIDE
     Dosage: 50 MG, QD
     Route: 042
  26. ALDIOXA [Concomitant]
     Active Substance: ALDIOXA
     Indication: GASTRITIS PROPHYLAXIS
     Dosage: 100 MG, TID
     Route: 048
     Dates: start: 20150715, end: 20150731
  27. ANYRUME [Concomitant]
     Active Substance: ACETAMINOPHEN
     Indication: ANTIPYRESIS
     Dosage: 400 MG, PRN
     Route: 048
  28. FLAGYL [Concomitant]
     Active Substance: METRONIDAZOLE\METRONIDAZOLE HYDROCHLORIDE
     Indication: ENTEROCOLITIS
     Dosage: 500 MG, BID
     Route: 048
     Dates: start: 20151013, end: 20151028

REACTIONS (2)
  - Pyrexia [Recovered/Resolved]
  - Pneumonitis [Recovered/Resolved]

NARRATIVE: CASE EVENT DATE: 20151004
